FAERS Safety Report 15355355 (Version 2)
Quarter: 2018Q4

REPORT INFORMATION
  Report Type: Spontaneous
  Country: RO (occurrence: RO)
  Receive Date: 20180906
  Receipt Date: 20181110
  Transmission Date: 20190204
  Serious: Yes (Hospitalization, Other)
  Sender: FDA-Public Use
  Company Number: RO-ACCORD-071313

PATIENT
  Age: 64 Year
  Sex: Female

DRUGS (8)
  1. METHOTREXATE. [Concomitant]
     Active Substance: METHOTREXATE
  2. ACETYLSALICYLIC ACID [Suspect]
     Active Substance: ASPIRIN
     Indication: ANTIPLATELET THERAPY
     Dosage: UNK
     Route: 065
  3. CLOPIDOGREL [Suspect]
     Active Substance: CLOPIDOGREL BISULFATE
     Indication: ANTIPLATELET THERAPY
     Route: 065
  4. HYDROXYCHLOROQUINE [Suspect]
     Active Substance: HYDROXYCHLOROQUINE
  5. PREDNISONE. [Concomitant]
     Active Substance: PREDNISONE
  6. DICLOFENAC [Concomitant]
     Active Substance: DICLOFENAC
     Indication: RHEUMATOID ARTHRITIS
  7. DICLOFENAC [Suspect]
     Active Substance: DICLOFENAC
     Indication: RHEUMATOID ARTHRITIS
     Dosage: 150 MG, DAILY
     Route: 065
     Dates: start: 201307
  8. SULFASALAZINE. [Suspect]
     Active Substance: SULFASALAZINE
     Indication: RHEUMATOID ARTHRITIS
     Dosage: 1 G IN 2000

REACTIONS (9)
  - Drug intolerance [Unknown]
  - Coronary artery disease [Unknown]
  - Acute myocardial infarction [Recovering/Resolving]
  - Vascular stent thrombosis [Recovered/Resolved]
  - Drug ineffective [Unknown]
  - Treatment noncompliance [Unknown]
  - Rheumatoid arthritis [Recovering/Resolving]
  - Angina pectoris [Unknown]
  - Intentional dose omission [Unknown]

NARRATIVE: CASE EVENT DATE: 2014
